FAERS Safety Report 5065066-7 (Version None)
Quarter: 2006Q3

REPORT INFORMATION
  Report Type: 
  Country: None (occurrence: None)
  Receive Date: 20060728
  Receipt Date: 20060718
  Transmission Date: 20061208
  Serious: Yes (Death)
  Sender: FDA-Public Use
  Company Number: AU-MERCK-0607USA03973

PATIENT
  Age: 70 Year
  Sex: Male

DRUGS (4)
  1. DECADRON [Suspect]
     Indication: CHEMOTHERAPY
     Route: 048
  2. CARBOPLATIN [Suspect]
     Indication: CHEMOTHERAPY
     Route: 065
  3. DOXORUBICIN [Suspect]
     Indication: CHEMOTHERAPY
     Route: 065
  4. CYTARABINE [Suspect]
     Indication: CHEMOTHERAPY
     Route: 065

REACTIONS (5)
  - DEATH [None]
  - DRUG INEFFECTIVE [None]
  - DRUG TOLERANCE DECREASED [None]
  - FEBRILE NEUTROPENIA [None]
  - GASTROINTESTINAL HAEMORRHAGE [None]
